FAERS Safety Report 8359072-4 (Version None)
Quarter: 2012Q2

REPORT INFORMATION
  Report Type: 
  Country: None (occurrence: None)
  Receive Date: 20120515
  Receipt Date: 20120504
  Transmission Date: 20120825
  Serious: Yes (Hospitalization)
  Sender: FDA-Public Use
  Company Number: FR-BRISTOL-MYERS SQUIBB COMPANY-16580334

PATIENT
  Age: 84 Year
  Sex: Female

DRUGS (10)
  1. ZOLPIDEM TARTRATE [Concomitant]
     Route: 048
  2. DEPAKENE [Concomitant]
     Dosage: FORMULATION-EXTENDED RELEASE SCORED FILM-COATED TAB
  3. MIANSERIN HCL [Concomitant]
     Route: 048
  4. LASIX [Concomitant]
     Route: 048
  5. ESCITALOPRAM [Concomitant]
     Dosage: FORMULATION-FILM-COATED TAB
  6. COUMADIN [Suspect]
     Indication: ATRIAL FIBRILLATION
     Route: 048
  7. FORADIL [Concomitant]
     Route: 048
  8. SPIRIVA [Concomitant]
     Route: 055
  9. LYRICA [Concomitant]
     Dosage: CAPS
  10. CACIT D3 [Concomitant]
     Route: 048

REACTIONS (6)
  - ANAEMIA [None]
  - INTERNATIONAL NORMALISED RATIO INCREASED [None]
  - PANCREATIC NEOPLASM [None]
  - HAEMATOMA [None]
  - EPISTAXIS [None]
  - RECTAL HAEMORRHAGE [None]
